FAERS Safety Report 9508464 (Version 1)
Quarter: 2013Q3

REPORT INFORMATION
  Report Type: Report from Study
  Country: FR (occurrence: FR)
  Receive Date: 20130909
  Receipt Date: 20130909
  Transmission Date: 20140515
  Serious: Yes (Other)
  Sender: FDA-Public Use
  Company Number: FR-CELGENEUS-056-C4047-13083985

PATIENT
  Age: 73 Year
  Sex: Female

DRUGS (4)
  1. CC-4047 [Suspect]
     Indication: PLASMA CELL MYELOMA
     Dosage: 4 MILLIGRAM
     Route: 048
     Dates: start: 20120618
  2. CC-4047 [Suspect]
     Dosage: 4 MILLIGRAM
     Route: 048
  3. NEODEX [Concomitant]
     Indication: PLASMA CELL MYELOMA
     Dosage: 20 MILLIGRAM
     Route: 065
     Dates: start: 20120618
  4. INNOHEP [Concomitant]
     Indication: PROPHYLAXIS
     Dosage: 4000 IU (INTERNATIONAL UNIT)
     Route: 065

REACTIONS (2)
  - Bundle branch block right [Unknown]
  - Neuropathy peripheral [Unknown]
